FAERS Safety Report 4764620-7 (Version None)
Quarter: 2005Q3

REPORT INFORMATION
  Report Type: 
  Country: None (occurrence: None)
  Receive Date: 20050907
  Receipt Date: 20050825
  Transmission Date: 20060218
  Serious: Yes (Other)
  Sender: FDA-Public Use
  Company Number: 142971USA

PATIENT
  Age: 66 Year
  Sex: Male

DRUGS (2)
  1. MERCAPTOPURINE [Suspect]
     Indication: CROHN'S DISEASE
  2. PREDNISONE [Concomitant]

REACTIONS (4)
  - DIFFUSE ALVEOLAR DAMAGE [None]
  - LEUKOCYTOSIS [None]
  - PNEUMONITIS [None]
  - PULMONARY TOXICITY [None]
